FAERS Safety Report 18928291 (Version 1)
Quarter: 2021Q1

REPORT INFORMATION
  Report Type: Spontaneous
  Country: JP (occurrence: JP)
  Receive Date: 20210223
  Receipt Date: 20210223
  Transmission Date: 20210420
  Serious: Yes (Other)
  Sender: FDA-Public Use
  Company Number: JP-PFIZER INC-2021156377

PATIENT

DRUGS (2)
  1. PREMARIN [Suspect]
     Active Substance: ESTROGENS, CONJUGATED
     Dosage: UNK
     Route: 048
     Dates: end: 20210205
  2. PLANOVAR [Suspect]
     Active Substance: ETHINYL ESTRADIOL\NORGESTREL
     Dosage: UNK

REACTIONS (2)
  - Hepatic function abnormal [Unknown]
  - Eating disorder [Unknown]
